FAERS Safety Report 5252964-4 (Version None)
Quarter: 2007Q1

REPORT INFORMATION
  Report Type: 
  Country: None (occurrence: None)
  Receive Date: 20070301
  Receipt Date: 20070220
  Transmission Date: 20070707
  Serious: Yes (Other)
  Sender: FDA-Public Use
  Company Number: US-ROCHE-475622

PATIENT
  Age: 24 Year
  Sex: Female

DRUGS (10)
  1. PEGASYS [Suspect]
     Route: 065
     Dates: start: 20061023
  2. RIBAVIRIN [Suspect]
     Route: 065
     Dates: start: 20061023
  3. KLONOPIN [Suspect]
     Indication: ANXIETY
     Dosage: DRUG ABUSE
     Route: 065
     Dates: start: 20070124, end: 20070124
  4. KLONOPIN [Suspect]
     Dosage: NORMAL CONCOMITANT DOSE.
     Route: 065
  5. XANAX [Suspect]
     Indication: DRUG USE FOR UNKNOWN INDICATION
     Dosage: DRUG ABUSE DOSE.
     Route: 065
     Dates: start: 20070124, end: 20070124
  6. XANAX [Suspect]
     Dosage: NORMAL CONCOMITANT DOSE.
     Route: 065
  7. PEXEVA [Concomitant]
     Indication: DEPRESSION
  8. DILAUDID [Concomitant]
     Indication: BACK PAIN
  9. LACTULOSE [Concomitant]
     Indication: CONSTIPATION
  10. ALBUTEROL SULFATE AND IPRATROPIUM BROMIDE [Concomitant]
     Indication: ASTHMA

REACTIONS (15)
  - ALOPECIA [None]
  - ANOREXIA [None]
  - ANXIETY [None]
  - DEHYDRATION [None]
  - DEPRESSION [None]
  - INFLUENZA LIKE ILLNESS [None]
  - INTENTIONAL DRUG MISUSE [None]
  - MALAISE [None]
  - NAUSEA [None]
  - PROCEDURAL COMPLICATION [None]
  - PYREXIA [None]
  - SUICIDAL IDEATION [None]
  - VOMITING [None]
  - WEIGHT DECREASED [None]
  - WHITE BLOOD CELL COUNT DECREASED [None]
